FAERS Safety Report 18561459 (Version 1)
Quarter: 2020Q4

REPORT INFORMATION
  Report Type: Report from Study
  Country: MX (occurrence: MX)
  Receive Date: 20201201
  Receipt Date: 20201201
  Transmission Date: 20210114
  Serious: Yes (Death, Disabling)
  Sender: FDA-Public Use
  Company Number: MX-UCBSA-2019031261

PATIENT
  Sex: Female

DRUGS (2)
  1. ROTIGOTINE [Suspect]
     Active Substance: ROTIGOTINE
     Indication: PARKINSON^S DISEASE
     Dosage: 4 MG EVERY THIRD DAY
     Route: 062
     Dates: start: 2014
  2. ROTIGOTINE [Suspect]
     Active Substance: ROTIGOTINE
     Dosage: 2 MG EVERY THIRD DAY
     Route: 062

REACTIONS (4)
  - Off label use [Unknown]
  - Death [Fatal]
  - Aphasia [Not Recovered/Not Resolved]
  - Skin reaction [Unknown]

NARRATIVE: CASE EVENT DATE: 2014
